FAERS Safety Report 12159369 (Version 1)
Quarter: 2016Q1

REPORT INFORMATION
  Report Type: Spontaneous
  Country: US (occurrence: US)
  Receive Date: 20160308
  Receipt Date: 20160308
  Transmission Date: 20160526
  Serious: No
  Sender: FDA-Public Use
  Company Number: US-PFIZER INC-2016143548

PATIENT
  Sex: Female

DRUGS (1)
  1. XANAX [Suspect]
     Active Substance: ALPRAZOLAM
     Dosage: UNK
     Route: 060

REACTIONS (6)
  - Agitation [Unknown]
  - Product taste abnormal [Unknown]
  - Product quality issue [Unknown]
  - Drug intolerance [Unknown]
  - Hangover [Unknown]
  - Drug hypersensitivity [Unknown]
